FAERS Safety Report 7762687-5 (Version None)
Quarter: 2011Q3

REPORT INFORMATION
  Report Type: 
  Country: None (occurrence: None)
  Receive Date: 20110920
  Receipt Date: 20110913
  Transmission Date: 20111222
  Serious: Yes (Death, Life-Threatening, Hospitalization)
  Sender: FDA-Public Use
  Company Number: DK-CELGENEUS-044-21880-10091408

PATIENT
  Sex: Male
  Weight: 70 kg

DRUGS (5)
  1. DEXAMETHASONE [Concomitant]
     Route: 048
     Dates: start: 20100828, end: 20100907
  2. REVLIMID [Suspect]
     Dosage: 25 MILLIGRAM
     Route: 048
     Dates: start: 20100828, end: 20100907
  3. MAREVAN ^NYCOMED^ [Concomitant]
     Route: 048
  4. MAREVAN ^NYCOMED^ [Concomitant]
     Indication: DEEP VEIN THROMBOSIS
     Route: 048
     Dates: start: 20100828, end: 20100907
  5. INNOHEP [Concomitant]
     Indication: DEEP VEIN THROMBOSIS
     Route: 050
     Dates: start: 20100828, end: 20100907

REACTIONS (3)
  - SEPSIS [None]
  - ACUTE HEPATIC FAILURE [None]
  - NEPHROPATHY [None]
